FAERS Safety Report 7479025-8 (Version None)
Quarter: 2011Q2

REPORT INFORMATION
  Report Type: 
  Country: None (occurrence: None)
  Receive Date: 20110513
  Receipt Date: 20110511
  Transmission Date: 20111010
  Serious: Yes (Death)
  Sender: FDA-Public Use
  Company Number: PHHY2011GB39585

PATIENT
  Age: 55 Year
  Sex: Male

DRUGS (10)
  1. IFOSFAMIDE [Suspect]
     Indication: BURKITT'S LYMPHOMA
  2. EMTRICITABINE [Concomitant]
  3. CYTARABINE [Suspect]
     Indication: BURKITT'S LYMPHOMA
     Route: 037
  4. DOXORUBICIN HCL [Suspect]
     Indication: BURKITT'S LYMPHOMA
  5. ETOPOSIDE [Suspect]
     Indication: BURKITT'S LYMPHOMA
  6. CYCLOPHOSPHAMIDE [Suspect]
     Indication: BURKITT'S LYMPHOMA
  7. VINCRISTINE [Suspect]
     Indication: BURKITT'S LYMPHOMA
  8. TENOFOVIR DISOPROXIL FUMARATE [Concomitant]
  9. EFAVIRENZ [Concomitant]
  10. METHOTREXATE [Suspect]
     Indication: BURKITT'S LYMPHOMA
     Dosage: UNK UKN, UNK

REACTIONS (1)
  - TOXICITY TO VARIOUS AGENTS [None]
